FAERS Safety Report 6742448-6 (Version None)
Quarter: 2010Q2

REPORT INFORMATION
  Report Type: 
  Country: None (occurrence: None)
  Receive Date: 20100524
  Receipt Date: 20100511
  Transmission Date: 20101027
  Serious: Yes (Hospitalization)
  Sender: FDA-Public Use
  Company Number: LEO-2010-00399

PATIENT
  Age: 57 Year
  Sex: Male
  Weight: 67 kg

DRUGS (5)
  1. INNOHEP [Suspect]
     Indication: THROMBOSIS PROPHYLAXIS
     Dosage: 12000 IU, SUBCUTANEOUS
     Route: 058
     Dates: start: 20090101, end: 20090915
  2. THALIDOMIDE [Concomitant]
  3. PREDNISONE TAB [Concomitant]
  4. MELPHALAN HYDROCHLORIDE [Concomitant]
  5. BISPHOSPHONATES (BISPHOSPHONATES) [Concomitant]

REACTIONS (4)
  - APLASIA [None]
  - NEUTROPENIA [None]
  - PARONYCHIA [None]
  - SEPSIS [None]
